FAERS Safety Report 6806179-6 (Version None)
Quarter: 2010Q2

REPORT INFORMATION
  Report Type: 
  Country: None (occurrence: None)
  Receive Date: 20100629
  Receipt Date: 20071219
  Transmission Date: 20101027
  Serious: No
  Sender: FDA-Public Use
  Company Number: US-PFIZER INC-2007107538

PATIENT
  Sex: Male

DRUGS (5)
  1. XANAX [Suspect]
  2. LISINOPRIL [Suspect]
     Indication: CARDIAC DISORDER
  3. LANTUS [Concomitant]
  4. METFORMIN HCL [Concomitant]
  5. GLIPIZIDE [Concomitant]

REACTIONS (1)
  - ERECTILE DYSFUNCTION [None]
